FAERS Safety Report 24078355 (Version 1)
Quarter: 2024Q3

REPORT INFORMATION
  Report Type: Spontaneous
  Country: US (occurrence: None)
  Receive Date: 20240710
  Receipt Date: 20240710
  Transmission Date: 20241017
  Serious: Yes (Other)
  Sender: Public
  Company Number: None

PATIENT
  Age: 34 Year
  Sex: Female

DRUGS (1)
  1. ADALIMUMAB-ADAZ [Suspect]
     Active Substance: ADALIMUMAB-ADAZ
     Indication: Ankylosing spondylitis
     Dosage: 40MG WEEKLY

REACTIONS (5)
  - Therapeutic product effect decreased [None]
  - Headache [None]
  - Dizziness [None]
  - Oropharyngeal pain [None]
  - Pharyngeal swelling [None]
